FAERS Safety Report 7973221-9 (Version None)
Quarter: 2011Q4

REPORT INFORMATION
  Report Type: 
  Country: None (occurrence: None)
  Receive Date: 20111213
  Receipt Date: 20111204
  Transmission Date: 20120403
  Serious: Yes (Death)
  Sender: FDA-Public Use
  Company Number: PHHY2011DE106342

PATIENT
  Sex: Male
  Weight: 105 kg

DRUGS (2)
  1. DIOVAN HCT [Suspect]
     Indication: HYPERTENSION
     Dosage: 1 DF (80 MG VALS AND 12.5 MG HYDRO), DAILY
     Route: 048
     Dates: start: 20070201, end: 20080210
  2. DIOVAN HCT [Suspect]
     Dosage: 1 DF (160 MG VALS AND 12.5 MG HYDRO), DAILY
     Route: 048
     Dates: start: 20081210

REACTIONS (2)
  - GASTRITIS [None]
  - PROSTATE CANCER METASTATIC [None]
